FAERS Safety Report 7249584-9 (Version None)
Quarter: 2011Q1

REPORT INFORMATION
  Report Type: 
  Country: None (occurrence: None)
  Receive Date: 20110128
  Receipt Date: 20101215
  Transmission Date: 20110831
  Serious: Yes (Hospitalization)
  Sender: FDA-Public Use
  Company Number: US-BAYER-201028004NA

PATIENT
  Sex: Female
  Weight: 58.957 kg

DRUGS (5)
  1. LOVENOX [Concomitant]
  2. COUMADIN [Concomitant]
  3. WARFARIN SODIUM [Concomitant]
  4. YASMIN [Suspect]
     Dosage: UNK
  5. YAZ [Suspect]
     Indication: CONTRACEPTION
     Dosage: UNK
     Route: 048
     Dates: start: 20080205, end: 20080605

REACTIONS (2)
  - DEEP VEIN THROMBOSIS [None]
  - PAIN [None]
